FAERS Safety Report 5029084-7 (Version None)
Quarter: 2006Q2

REPORT INFORMATION
  Report Type: 
  Country: None (occurrence: None)
  Receive Date: 20060619
  Receipt Date: 20060609
  Transmission Date: 20061013
  Serious: Yes (Hospitalization)
  Sender: FDA-Public Use
  Company Number: JP-JNJFOC-20031100928

PATIENT
  Sex: Female

DRUGS (15)
  1. RISPERDAL [Suspect]
     Route: 048
     Dates: start: 20031016, end: 20031024
  2. RISPERDAL [Suspect]
     Route: 048
     Dates: start: 20031016, end: 20031024
  3. RISPERDAL [Suspect]
     Route: 048
     Dates: start: 20031016, end: 20031024
  4. RISPERDAL [Suspect]
     Indication: SCHIZOPHRENIA
     Route: 048
     Dates: start: 20031016, end: 20031024
  5. LEVOMEPROMAZINE MALEATE [Suspect]
     Route: 048
     Dates: start: 20031016, end: 20031022
  6. LEVOMEPROMAZINE MALEATE [Suspect]
     Route: 048
     Dates: start: 20031016, end: 20031022
  7. LEVOMEPROMAZINE MALEATE [Suspect]
     Route: 048
     Dates: start: 20031016, end: 20031022
  8. LEVOMEPROMAZINE MALEATE [Suspect]
     Route: 048
     Dates: start: 20031016, end: 20031022
  9. LEVOMEPROMAZINE MALEATE [Suspect]
     Indication: SCHIZOPHRENIA
     Route: 048
     Dates: start: 20031016, end: 20031022
  10. BIPERIDEN HYDROCHLORIDE TAB [Concomitant]
     Route: 048
     Dates: start: 20031016, end: 20031022
  11. BROTIZOLAM [Concomitant]
     Route: 048
     Dates: start: 20031016, end: 20031016
  12. LORAZEPAM [Concomitant]
     Route: 048
     Dates: start: 20031016, end: 20031016
  13. FLUNITRAZEPAM [Concomitant]
     Route: 048
     Dates: start: 20031017, end: 20031022
  14. FLUNITRAZEPAM [Concomitant]
     Route: 048
     Dates: start: 20031017, end: 20031022
  15. PROMETHAZINE HCL [Concomitant]
     Route: 048
     Dates: start: 20031017, end: 20031022

REACTIONS (19)
  - ALANINE AMINOTRANSFERASE INCREASED [None]
  - ASPARTATE AMINOTRANSFERASE INCREASED [None]
  - BLOOD CREATINE PHOSPHOKINASE INCREASED [None]
  - BLOOD LACTATE DEHYDROGENASE INCREASED [None]
  - CATATONIA [None]
  - CONVULSION [None]
  - DRUG INEFFECTIVE [None]
  - DRUG INTERACTION [None]
  - GASTROINTESTINAL HYPOMOTILITY [None]
  - HERPES SIMPLEX [None]
  - INCREASED BRONCHIAL SECRETION [None]
  - INSOMNIA [None]
  - LIVER FUNCTION TEST ABNORMAL [None]
  - PNEUMONIA ASPIRATION [None]
  - PYREXIA [None]
  - RESPIRATORY FAILURE [None]
  - SOMNOLENCE [None]
  - VOMITING [None]
  - WHITE BLOOD CELL COUNT INCREASED [None]
